FAERS Safety Report 22070312 (Version 1)
Quarter: 2023Q1

REPORT INFORMATION
  Report Type: Report from Study
  Country: EG (occurrence: EG)
  Receive Date: 20230307
  Receipt Date: 20230307
  Transmission Date: 20230418
  Serious: Yes (Other)
  Sender: FDA-Public Use
  Company Number: EG-002147023-NVSC2023EG048442

PATIENT
  Age: 9 Year
  Sex: Male

DRUGS (4)
  1. GILENYA [Suspect]
     Active Substance: FINGOLIMOD HYDROCHLORIDE
     Indication: Multiple sclerosis
     Dosage: 1 DOSAGE FORM, QD
     Route: 048
     Dates: start: 20210615, end: 202201
  2. GILENYA [Suspect]
     Active Substance: FINGOLIMOD HYDROCHLORIDE
     Dosage: 1 DOSAGE FORM, QOD (ONE CAPSULE EACH OTHER DAY)
     Route: 048
     Dates: start: 202201
  3. FOLIC ACID [Concomitant]
     Active Substance: FOLIC ACID
     Indication: Supplementation therapy
     Dosage: BID, FROM A YEAR AND HALF FOR ONLY ONE WEEK
     Route: 065
  4. OMEGA 3 [Concomitant]
     Active Substance: CAPSAICIN
     Indication: Supplementation therapy
     Dosage: QD, EXACT DATE WAS UNKNOWN BY THE REPORTER: PATIENT USED IT FOR THREE MONTHS
     Route: 065

REACTIONS (11)
  - Abdominal pain upper [Recovered/Resolved]
  - Polydipsia [Recovering/Resolving]
  - Pollakiuria [Recovering/Resolving]
  - Hunger [Recovering/Resolving]
  - Fatigue [Recovering/Resolving]
  - Decreased immune responsiveness [Recovering/Resolving]
  - Hepatic enzyme increased [Recovered/Resolved]
  - Rhinorrhoea [Recovering/Resolving]
  - Tonsillitis [Recovered/Resolved]
  - Nasopharyngitis [Recovered/Resolved]
  - Pyrexia [Recovered/Resolved]

NARRATIVE: CASE EVENT DATE: 20211214
